FAERS Safety Report 7664284-9 (Version None)
Quarter: 2011Q3

REPORT INFORMATION
  Report Type: 
  Country: None (occurrence: None)
  Receive Date: 20110806
  Receipt Date: 20110112
  Transmission Date: 20111222
  Serious: No
  Sender: FDA-Public Use
  Company Number: US-ABBOTT-11P-163-0697683-00

PATIENT
  Sex: Female
  Weight: 56.75 kg

DRUGS (14)
  1. TYLENOL-500 [Concomitant]
     Indication: PAIN IN EXTREMITY
     Dosage: AS NEEDED AND AT HOUR OF SLEEP
  2. ANTIHISTAMINES [Concomitant]
     Indication: NASAL DISORDER
     Dosage: AT HOUR OF SLEEP
  3. ANTIHISTAMINES [Concomitant]
     Indication: SLEEP DISORDER
  4. NIASPAN [Suspect]
     Route: 048
     Dates: start: 20101101, end: 20110110
  5. MUSCLE RELAXANTS [Concomitant]
     Indication: PAIN IN EXTREMITY
     Dosage: AT HOUR OF SLEEP
  6. FUROSEMIDE [Concomitant]
     Indication: PRODUCT USED FOR UNKNOWN INDICATION
  7. ASPIRIN [Concomitant]
     Indication: CARDIAC DISORDER
     Dosage: AT HOUR OF SLEEP
     Route: 048
  8. NIASPAN [Suspect]
     Indication: LOW DENSITY LIPOPROTEIN INCREASED
     Route: 048
     Dates: start: 20100111
  9. MIRALAX [Suspect]
     Indication: CONSTIPATION
     Dosage: AT HOUR OF SLEEP
  10. PREDNISONE [Concomitant]
     Indication: ARTHRITIS
     Route: 048
  11. NIASPAN [Suspect]
     Indication: LOW DENSITY LIPOPROTEIN INCREASED
     Route: 048
     Dates: start: 20100111
  12. DILTIAZEM [Concomitant]
     Indication: HYPERTENSION
  13. TYLENOL-500 [Concomitant]
     Indication: ARTHRITIS
  14. LISINOPRIL [Concomitant]
     Indication: HYPERTENSION
     Dosage: EVERY MORNING

REACTIONS (2)
  - MEDICATION RESIDUE [None]
  - DIARRHOEA [None]
